FAERS Safety Report 11981785 (Version 3)
Quarter: 2016Q1

REPORT INFORMATION
  Report Type: Spontaneous
  Country: US (occurrence: US)
  Receive Date: 20160131
  Receipt Date: 20160318
  Transmission Date: 20160526
  Serious: No
  Sender: FDA-Public Use
  Company Number: US-ASTRAZENECA-2016SE07739

PATIENT
  Age: 26698 Day
  Sex: Female
  Weight: 68 kg

DRUGS (12)
  1. BRILINTA [Suspect]
     Active Substance: TICAGRELOR
     Indication: ACUTE CORONARY SYNDROME
     Route: 048
     Dates: start: 20160120
  2. LISINOPRIL. [Suspect]
     Active Substance: LISINOPRIL
     Indication: BLOOD PRESSURE INCREASED
     Route: 048
  3. L-THYROXINE [Concomitant]
     Active Substance: LEVOTHYROXINE
     Indication: GOITRE
  4. WELCHOL [Concomitant]
     Active Substance: COLESEVELAM HYDROCHLORIDE
     Indication: BLOOD CHOLESTEROL ABNORMAL
  5. RANITIDINE [Concomitant]
     Active Substance: RANITIDINE\RANITIDINE HYDROCHLORIDE
     Indication: GASTROOESOPHAGEAL REFLUX DISEASE
  6. INTEGRA F [Concomitant]
     Active Substance: ASCORBIC ACID\FERROUS ASPARTO GLYCINATE\FERROUS FUMARATE\FOLIC ACID\NIACIN
     Indication: IRON DEFICIENCY ANAEMIA
  7. METFORMIN [Concomitant]
     Active Substance: METFORMIN HYDROCHLORIDE
     Indication: TYPE 2 DIABETES MELLITUS
  8. ATORVASTATIN [Concomitant]
     Active Substance: ATORVASTATIN
     Indication: BLOOD CHOLESTEROL ABNORMAL
  9. BRILINTA [Suspect]
     Active Substance: TICAGRELOR
     Indication: STENT PLACEMENT
     Route: 048
     Dates: start: 20160120
  10. GLIPIZIDE. [Concomitant]
     Active Substance: GLIPIZIDE
     Indication: TYPE 2 DIABETES MELLITUS
  11. BAYER ASPIRIN [Concomitant]
     Active Substance: ASPIRIN
     Indication: DRUG THERAPY
  12. VERAPAMIL [Concomitant]
     Active Substance: VERAPAMIL HYDROCHLORIDE
     Indication: VENTRICULAR TACHYCARDIA

REACTIONS (3)
  - Chronic obstructive pulmonary disease [Unknown]
  - Dyspnoea [Recovered/Resolved]
  - Hepatic steatosis [Unknown]

NARRATIVE: CASE EVENT DATE: 20160120
